FAERS Safety Report 7414417-4 (Version None)
Quarter: 2011Q2

REPORT INFORMATION
  Report Type: 
  Country: None (occurrence: None)
  Receive Date: 20110414
  Receipt Date: 20101026
  Transmission Date: 20111010
  Serious: Yes (Hospitalization, Other)
  Sender: FDA-Public Use
  Company Number: US-BAYER-201024695NA

PATIENT
  Age: 36 Year
  Sex: Female
  Weight: 51 kg

DRUGS (5)
  1. NSAID'S [Concomitant]
  2. YASMIN [Suspect]
     Indication: PRODUCT USED FOR UNKNOWN INDICATION
     Route: 048
  3. LEVOTHYROXINE SODIUM [Concomitant]
     Indication: THYROID DISORDER
     Dosage: UNK
     Dates: start: 20050101
  4. YAZ [Suspect]
     Indication: PRODUCT USED FOR UNKNOWN INDICATION
     Route: 048
  5. ANTIBIOTICS [Concomitant]

REACTIONS (4)
  - CHOLELITHIASIS [None]
  - GALLBLADDER INJURY [None]
  - GALLBLADDER DISORDER [None]
  - CHOLECYSTITIS [None]
